FAERS Safety Report 11137025 (Version 1)
Quarter: 2015Q2

REPORT INFORMATION
  Report Type: Spontaneous
  Country: US (occurrence: US)
  Receive Date: 20150526
  Receipt Date: 20150526
  Transmission Date: 20150821
  Serious: No
  Sender: FDA-Public Use
  Company Number: US-MALLINCKRODT-T201501541

PATIENT
  Sex: Female

DRUGS (3)
  1. IVIGLOB EX [Concomitant]
     Active Substance: HUMAN IMMUNOGLOBULIN G
  2. H.P. ACTHAR [Suspect]
     Active Substance: CORTICOTROPIN
     Indication: DERMATOMYOSITIS
     Dosage: 80 U/ML; WEEKLY FOR 3 MONTHS
     Route: 065
     Dates: start: 201501
  3. PREDNISONE. [Concomitant]
     Active Substance: PREDNISONE
     Dosage: LOW DOSE

REACTIONS (2)
  - Rash [Unknown]
  - Psoriasis [Unknown]
